FAERS Safety Report 11044175 (Version 1)
Quarter: 2015Q2

REPORT INFORMATION
  Report Type: Spontaneous
  Country: US (occurrence: None)
  Receive Date: 20150416
  Receipt Date: 20150416
  Transmission Date: 20150821
  Serious: Yes (Hospitalization)
  Sender: FDA-Public Use
  Company Number: None

PATIENT
  Age: 23 Year
  Sex: Male

DRUGS (4)
  1. QUETIAPINE 300MG [Suspect]
     Active Substance: QUETIAPINE
     Indication: PSYCHOTIC DISORDER
     Dosage: 1 TABLET QHS/BEDTIME
     Route: 048
     Dates: start: 20150414, end: 20150414
  2. BENZTROPINE [Concomitant]
     Active Substance: BENZTROPINE
  3. ZOLPIDEM [Concomitant]
     Active Substance: ZOLPIDEM\ZOLPIDEM TARTRATE
  4. RISPERIDONE. [Concomitant]
     Active Substance: RISPERIDONE

REACTIONS (9)
  - Dry mouth [None]
  - Agitation [None]
  - Hallucination [None]
  - Tachycardia [None]
  - Hypertension [None]
  - Dizziness [None]
  - Akathisia [None]
  - Sedation [None]
  - Dysarthria [None]

NARRATIVE: CASE EVENT DATE: 20150414
